FAERS Safety Report 7450598-4 (Version None)
Quarter: 2011Q2

REPORT INFORMATION
  Report Type: 
  Country: None (occurrence: None)
  Receive Date: 20110502
  Receipt Date: 20110418
  Transmission Date: 20111010
  Serious: Yes (Disabling, Other)
  Sender: FDA-Public Use
  Company Number: US-ELI_LILLY_AND_COMPANY-US201008001508

PATIENT
  Sex: Female

DRUGS (17)
  1. FORTEO [Suspect]
     Dosage: 20 UG, DAILY (1/D)
  2. XANAX [Concomitant]
     Dosage: UNK, UNKNOWN
  3. OXYCODONE [Concomitant]
     Dosage: UNK, UNKNOWN
  4. AMBIEN [Concomitant]
     Dosage: UNK, UNKNOWN
  5. SERTRALINE [Concomitant]
  6. SOMA [Concomitant]
     Dosage: UNK, UNKNOWN
  7. TOPAMAX [Concomitant]
  8. FORTEO [Suspect]
     Dosage: 20 UG, DAILY (1/D)
  9. OPANA [Concomitant]
  10. IMITREX [Concomitant]
  11. FORTEO [Suspect]
     Indication: OSTEOPOROSIS
     Dosage: 20 UG, DAILY (1/D)
  12. PRILOSEC [Concomitant]
     Dosage: UNK, UNKNOWN
  13. FORTEO [Suspect]
     Dosage: 20 UG, QD
  14. ZOLOFT [Concomitant]
     Dosage: UNK, UNKNOWN
  15. VITAMIN D [Concomitant]
  16. VITAMIN C [Concomitant]
     Dosage: UNK, UNKNOWN
  17. CIPRO [Concomitant]

REACTIONS (29)
  - VISUAL ACUITY REDUCED [None]
  - BACK PAIN [None]
  - OEDEMA PERIPHERAL [None]
  - PYREXIA [None]
  - FOOD CRAVING [None]
  - ASTHENIA [None]
  - SPLENOMEGALY [None]
  - DIZZINESS [None]
  - SPINAL FRACTURE [None]
  - RED BLOOD CELL COUNT INCREASED [None]
  - HEPATIC STEATOSIS [None]
  - AMNESIA [None]
  - MEDICATION ERROR [None]
  - MOVEMENT DISORDER [None]
  - PAIN [None]
  - DYSSTASIA [None]
  - EATING DISORDER [None]
  - APPETITE DISORDER [None]
  - INSOMNIA [None]
  - NAUSEA [None]
  - DRUG DOSE OMISSION [None]
  - LOSS OF CONSCIOUSNESS [None]
  - SURGERY [None]
  - CLOSTRIDIAL INFECTION [None]
  - GAIT DISTURBANCE [None]
  - MALAISE [None]
  - DISABILITY [None]
  - FALL [None]
  - INJECTION SITE HAEMATOMA [None]
